FAERS Safety Report 9149900 (Version 2)
Quarter: 2013Q2

REPORT INFORMATION
  Report Type: Spontaneous
  Country: JP (occurrence: None)
  Receive Date: 20130131
  Receipt Date: 20130503
  Transmission Date: 20140414
  Serious: Yes (Hospitalization)
  Sender: FDA-Public Use
  Company Number: TCI2012A04526

PATIENT
  Age: 71 Year
  Sex: Male

DRUGS (4)
  1. LANSOPRAZOLE (LANSOPRAZOLE) [Suspect]
     Indication: GASTROOESOPHAGEAL REFLUX DISEASE
     Dosage: (30 MG, 1 IN 1 D)
     Route: 048
     Dates: start: 20111130, end: 20111213
  2. TAK-438 (TAK-438) [Suspect]
     Indication: GASTROOESOPHAGEAL REFLUX DISEASE
     Dosage: 20 MG (20 MG, 1 IN 1 D)
     Route: 048
     Dates: start: 20111214
  3. ADALAT L (NIFEDIPINE) [Concomitant]
  4. LAXOBERON (SODIUM PISCOSULFATE) [Concomitant]

REACTIONS (1)
  - Thyroiditis subacute [None]
